FAERS Safety Report 6130432-5 (Version None)
Quarter: 2009Q1

REPORT INFORMATION
  Report Type: 
  Country: None (occurrence: None)
  Receive Date: 20090323
  Receipt Date: 20090309
  Transmission Date: 20090719
  Serious: Yes (Hospitalization)
  Sender: FDA-Public Use
  Company Number: A-US2007-14553

PATIENT
  Age: 46 Year
  Sex: Female

DRUGS (2)
  1. TRACLEER [Suspect]
     Indication: PULMONARY ARTERIAL HYPERTENSION
     Dosage: ORAL
     Route: 048
     Dates: start: 20040818
  2. REMODULIN (TREPROSTINIL) [Concomitant]

REACTIONS (5)
  - DISEASE PROGRESSION [None]
  - PAIN IN EXTREMITY [None]
  - POST PROCEDURAL INFECTION [None]
  - PULMONARY ARTERIAL PRESSURE ABNORMAL [None]
  - PULMONARY HYPERTENSION [None]
